FAERS Safety Report 19682280 (Version 2)
Quarter: 2021Q3

REPORT INFORMATION
  Report Type: Report from Study
  Country: BR (occurrence: BR)
  Receive Date: 20210810
  Receipt Date: 20210818
  Transmission Date: 20211014
  Serious: Yes (Other)
  Sender: FDA-Public Use
  Company Number: BR-TAKEDA-BR202028440

PATIENT
  Sex: Male
  Weight: 36 kg

DRUGS (3)
  1. IDURSULFASE [Suspect]
     Active Substance: IDURSULFASE
     Dosage: UNK
     Route: 042
  2. IDURSULFASE [Suspect]
     Active Substance: IDURSULFASE
     Indication: MUCOPOLYSACCHARIDOSIS II
     Dosage: 3 DOSAGE FORM
     Route: 042
     Dates: start: 20150423
  3. CARBAMAZEPINE. [Concomitant]
     Active Substance: CARBAMAZEPINE
     Dosage: UNK UNK, QD
     Route: 065

REACTIONS (5)
  - Condition aggravated [Recovered/Resolved with Sequelae]
  - Seizure [Unknown]
  - Mucopolysaccharidosis II [Recovered/Resolved with Sequelae]
  - Nervous system disorder [Unknown]
  - Bedridden [Unknown]
